FAERS Safety Report 13917535 (Version 2)
Quarter: 2017Q4

REPORT INFORMATION
  Report Type: Spontaneous
  Country: US (occurrence: US)
  Receive Date: 20170829
  Receipt Date: 20171024
  Transmission Date: 20180320
  Serious: Yes (Death, Hospitalization)
  Sender: FDA-Public Use
  Company Number: US-SA-2017SA157169

PATIENT
  Age: 79 Year
  Sex: Male

DRUGS (2)
  1. DUPIXENT [Suspect]
     Active Substance: DUPILUMAB
     Indication: DERMATITIS ATOPIC
     Route: 058
     Dates: start: 20170623, end: 20170623
  2. DUPIXENT [Suspect]
     Active Substance: DUPILUMAB
     Indication: DERMATITIS ATOPIC
     Dosage: FREQUENCY- EVERY WEEK AND A HALF
     Route: 058
     Dates: start: 201706, end: 20170820

REACTIONS (9)
  - Pneumonia [Fatal]
  - Immunosuppression [Fatal]
  - Fall [Unknown]
  - Malaise [Fatal]
  - Septic shock [Fatal]
  - Respiration abnormal [Fatal]
  - Urinary tract infection [Fatal]
  - Wound [Fatal]
  - Lung disorder [Fatal]

NARRATIVE: CASE EVENT DATE: 2017
